FAERS Safety Report 16725647 (Version 1)
Quarter: 2019Q3

REPORT INFORMATION
  Report Type: Report from Study
  Country: US (occurrence: US)
  Receive Date: 20190821
  Receipt Date: 20190821
  Transmission Date: 20191005
  Serious: Yes (Hospitalization)
  Sender: FDA-Public Use
  Company Number: US-JNJFOC-20190822267

PATIENT
  Age: 87 Year
  Sex: Male

DRUGS (1)
  1. IMBRUVICA [Suspect]
     Active Substance: IBRUTINIB
     Indication: CHRONIC LYMPHOCYTIC LEUKAEMIA
     Dosage: 420 MG, QD
     Route: 048
     Dates: start: 20190803, end: 201908

REACTIONS (5)
  - Dyspepsia [Unknown]
  - Haematocrit decreased [Unknown]
  - Malaise [Unknown]
  - Hypotension [Unknown]
  - Hypovolaemia [Unknown]

NARRATIVE: CASE EVENT DATE: 201908
